FAERS Safety Report 23977152 (Version 1)
Quarter: 2024Q2

REPORT INFORMATION
  Report Type: Spontaneous
  Country: CH (occurrence: CH)
  Receive Date: 20240614
  Receipt Date: 20240614
  Transmission Date: 20240716
  Serious: Yes (Other)
  Sender: FDA-Public Use
  Company Number: None

PATIENT
  Age: 74 Year
  Sex: Male
  Weight: 64 kg

DRUGS (19)
  1. HYDROMORPHONE [Suspect]
     Active Substance: HYDROMORPHONE
     Indication: Product used for unknown indication
     Dosage: 2 MG HYDROMORPHON PER ML(2 MG/ML 0.2 MG 4X/DAY)
     Route: 042
  2. METRONIDAZOLE [Suspect]
     Active Substance: METRONIDAZOLE
     Indication: Septic shock
     Dosage: 500 MILLIGRAM, Q8H
     Route: 042
     Dates: start: 20240421, end: 20240430
  3. AMOXICILLIN\CLAVULANATE POTASSIUM [Suspect]
     Active Substance: AMOXICILLIN\CLAVULANATE POTASSIUM
     Indication: Septic shock
     Dosage: 2.2 GRAM, Q8H
     Route: 042
     Dates: start: 20240417, end: 20240421
  4. AMOXICILLIN\CLAVULANATE POTASSIUM [Suspect]
     Active Substance: AMOXICILLIN\CLAVULANATE POTASSIUM
     Dosage: 2.2 GRAM, Q8H
     Route: 042
     Dates: start: 20240422, end: 20240430
  5. SEROQUEL [Suspect]
     Active Substance: QUETIAPINE FUMARATE
     Indication: Product used for unknown indication
     Dosage: RETARD, 50 MG QUETIAPINE PER TABLET(50 MG 2 PCS. 1X/DAY)
     Route: 048
  6. SEROQUEL [Suspect]
     Active Substance: QUETIAPINE FUMARATE
     Dosage: 25 MG QUETIAPINE PER TABLET(25 MG ? PC. 4X/DAY)
     Route: 048
  7. CANDESARTAN [Concomitant]
     Active Substance: CANDESARTAN
     Indication: Product used for unknown indication
     Dosage: 16 MG 1 PC. 1X/DAY
     Route: 048
  8. TORSEMIDE [Concomitant]
     Active Substance: TORSEMIDE
     Indication: Product used for unknown indication
     Dosage: 10 MG TORASEMID PER TABLET(10 MG 1 PC. 2X/DAY)
     Route: 048
  9. ATORVASTATIN [Concomitant]
     Active Substance: ATORVASTATIN
     Indication: Product used for unknown indication
     Dosage: 40 MG N.O.S.
     Route: 048
  10. ENOXAPARIN SODIUM [Concomitant]
     Active Substance: ENOXAPARIN SODIUM
     Indication: Product used for unknown indication
     Dosage: 40 MG ENOXAPARIN PER 0.4 ML(40 MG/0.4 ML 1 PC.1X/DAY)
     Route: 058
  11. KALIUMCHLORID B. BRAUN [Concomitant]
     Indication: Product used for unknown indication
     Dosage: 20 MMOL KALIUMCHLORID IN 10 ML(60 MMOL 1X/DAY)
     Route: 042
  12. ASPIRIN DL-LYSINE [Concomitant]
     Active Substance: ASPIRIN DL-LYSINE
     Indication: Product used for unknown indication
     Dosage: 0.5G 100 MG 1X/DAY
     Route: 042
  13. ACETAMINOPHEN [Concomitant]
     Active Substance: ACETAMINOPHEN
     Indication: Product used for unknown indication
     Dosage: 500 MG PARACETAMOL IN 50 ML(500MG/50 ML 1 PC. 4X/DAY)
     Route: 042
  14. Novalgin [Concomitant]
     Indication: Product used for unknown indication
     Dosage: 1G METAMIZOL IN 2 ML(1G/2ML 1PC. 4 TIMES/DAY)
     Route: 042
  15. DEXMEDETOMIDINE HYDROCHLORIDE [Concomitant]
     Active Substance: DEXMEDETOMIDINE HYDROCHLORIDE
     Indication: Product used for unknown indication
     Dosage: IN RESERVE WITH 0-1.4 MCG/KG/H ; AS NECESSARY
     Route: 042
  16. ONDANSETRON [Concomitant]
     Active Substance: ONDANSETRON
     Indication: Product used for unknown indication
     Dosage: 4 MG ONDANSETRON IN 2 ML(4 MG/2ML 2 MG 1X/DAY)
     Route: 042
  17. MEROPENEM [Concomitant]
     Active Substance: MEROPENEM
     Indication: Septic shock
     Dosage: 2 GRAM, Q8H
     Route: 042
     Dates: start: 20240421, end: 20240422
  18. PIPERACILLIN SODIUM\TAZOBACTAM SODIUM [Concomitant]
     Active Substance: PIPERACILLIN SODIUM\TAZOBACTAM SODIUM
     Indication: Septic shock
     Dosage: 4.5 GRAM, Q8H
     Route: 042
     Dates: start: 20240415, end: 20240417
  19. HYDROCORTISONE [Concomitant]
     Active Substance: HYDROCORTISONE\HYDROCORTISONE ACETATE
     Indication: Product used for unknown indication
     Dosage: 200 MG/D
     Route: 065
     Dates: start: 20240415, end: 20240417

REACTIONS (1)
  - Generalised tonic-clonic seizure [Recovering/Resolving]

NARRATIVE: CASE EVENT DATE: 20240429
